FAERS Safety Report 14628186 (Version 1)
Quarter: 2018Q1

REPORT INFORMATION
  Report Type: Spontaneous
  Country: US (occurrence: US)
  Receive Date: 20180312
  Receipt Date: 20180312
  Transmission Date: 20180509
  Serious: No
  Sender: FDA-Public Use
  Company Number: US-ALLERGAN-1734835US

PATIENT
  Age: 56 Year
  Sex: Female

DRUGS (5)
  1. ESTRACE [Suspect]
     Active Substance: ESTRADIOL
     Indication: URETHRAL CARUNCLE
     Dosage: 1 MG, QD
     Route: 067
  2. ESTRACE [Suspect]
     Active Substance: ESTRADIOL
     Dosage: 1 MG, QOD
     Route: 067
  3. ESTRACE [Suspect]
     Active Substance: ESTRADIOL
     Indication: ATROPHIC VULVOVAGINITIS
     Dosage: 2 MG, QD
     Route: 067
     Dates: start: 20170726
  4. ZANTAC [Concomitant]
     Active Substance: RANITIDINE HYDROCHLORIDE
     Indication: GASTROOESOPHAGEAL REFLUX DISEASE
     Dosage: UNK UNK, PRN
     Route: 048
  5. IMODIUM [Concomitant]
     Active Substance: LOPERAMIDE HYDROCHLORIDE
     Indication: IRRITABLE BOWEL SYNDROME
     Dosage: UNK UNK, PRN
     Route: 048

REACTIONS (3)
  - Abdominal pain [Unknown]
  - Off label use [Unknown]
  - Breast tenderness [Unknown]
